FAERS Safety Report 24716954 (Version 1)
Quarter: 2024Q4

REPORT INFORMATION
  Report Type: Spontaneous
  Country: CN (occurrence: CN)
  Receive Date: 20241210
  Receipt Date: 20241210
  Transmission Date: 20250114
  Serious: Yes (Life-Threatening, Hospitalization, Other)
  Sender: ASTELLAS
  Company Number: CN-ASTELLAS-2024-AER-023967

PATIENT
  Age: 64 Year
  Sex: Male
  Weight: 50.0 kg

DRUGS (2)
  1. ISAVUCONAZOLE [Suspect]
     Active Substance: ISAVUCONAZOLE
     Indication: Anti-infective therapy
     Route: 042
     Dates: start: 20241018, end: 20241021
  2. VORICONAZOLE [Concomitant]
     Active Substance: VORICONAZOLE
     Indication: Anti-infective therapy
     Route: 065
     Dates: start: 20241014

REACTIONS (3)
  - Respiratory failure [Recovering/Resolving]
  - Dyspnoea [Unknown]
  - Hyperhidrosis [Unknown]

NARRATIVE: CASE EVENT DATE: 20241021
